FAERS Safety Report 24195587 (Version 2)
Quarter: 2024Q3

REPORT INFORMATION
  Report Type: Spontaneous
  Country: JP (occurrence: JP)
  Receive Date: 20240809
  Receipt Date: 20240827
  Transmission Date: 20241016
  Serious: Yes (Other)
  Sender: MALLINCKRODT
  Company Number: JP-MALLINCKRODT-MNK202405005

PATIENT
  Age: 50 Year

DRUGS (1)
  1. NITRIC OXIDE [Suspect]
     Active Substance: NITRIC OXIDE
     Indication: Pulmonary hypertension
     Dosage: UNKNOWN
     Route: 055

REACTIONS (1)
  - Pulmonary congestion [Recovered/Resolved]

NARRATIVE: CASE EVENT DATE: 20240107
